FAERS Safety Report 4901529-X (Version None)
Quarter: 2006Q1

REPORT INFORMATION
  Report Type: 
  Country: None (occurrence: None)
  Receive Date: 20060206
  Receipt Date: 20041223
  Transmission Date: 20060701
  Serious: No
  Sender: FDA-Public Use
  Company Number: US-BRISTOL-MYERS SQUIBB COMPANY-12806717

PATIENT
  Age: 61 Year
  Sex: Female

DRUGS (7)
  1. CARBOPLATIN [Suspect]
     Indication: OVARIAN CANCER
     Route: 042
     Dates: start: 20040506, end: 20041215
  2. CARBOPLATIN [Suspect]
     Indication: METASTASES TO LUNG
     Route: 042
     Dates: start: 20040506, end: 20041215
  3. TAXOL [Suspect]
     Indication: OVARIAN CANCER
     Route: 042
     Dates: start: 20040506, end: 20041215
  4. TAXOL [Suspect]
     Indication: METASTASES TO LUNG
     Route: 042
     Dates: start: 20040506, end: 20041215
  5. DECADRON PHOSPHATE [Concomitant]
     Route: 042
  6. KYTRIL [Concomitant]
     Route: 042
  7. BENADRYL [Concomitant]
     Route: 042

REACTIONS (3)
  - ANXIETY [None]
  - DYSPNOEA [None]
  - ERYTHEMA [None]
